FAERS Safety Report 9173885 (Version 1)
Quarter: 2013Q1

REPORT INFORMATION
  Report Type: Spontaneous
  Country: US (occurrence: None)
  Receive Date: 20130318
  Receipt Date: 20130318
  Transmission Date: 20140127
  Serious: Yes (Other)
  Sender: FDA-Public Use
  Company Number: 2013P1003090

PATIENT
  Age: 16 Year
  Sex: Female
  Weight: 54.43 kg

DRUGS (3)
  1. MYORISAN 40 MG [Suspect]
  2. DROSPIRENONE/ ETHINYL ESTRADIOL/ LEVOMEFOLATE [Suspect]
     Indication: ACNE CYSTIC
     Route: 048
     Dates: start: 20121108, end: 20130306
  3. DROSPIRENONE/ ETHINYL ESTRADIOL/ LEVOMEFOLATE [Suspect]
     Indication: CONTRACEPTION
     Route: 048
     Dates: start: 20121108, end: 20130306

REACTIONS (3)
  - Depression [None]
  - Nausea [None]
  - Vomiting [None]
